FAERS Safety Report 7231839-5 (Version None)
Quarter: 2011Q1

REPORT INFORMATION
  Report Type: 
  Country: None (occurrence: None)
  Receive Date: 20110118
  Receipt Date: 20110107
  Transmission Date: 20110831
  Serious: Yes (Hospitalization, Other)
  Sender: FDA-Public Use
  Company Number: PHEH2008US03145

PATIENT
  Sex: Female

DRUGS (29)
  1. ZITHROMAX [Concomitant]
  2. SULFAMETHOXYPYRAZINE/TRIMETHOPRIM [Concomitant]
     Dosage: 800-160 MG, UNK
     Route: 048
  3. METOPROLOL SUCCINATE [Concomitant]
     Dosage: 100 MG, UNK
     Route: 048
  4. DILAUDID [Concomitant]
  5. METHADONE [Concomitant]
  6. METRONIDAZOL ^ALPHARMA^ [Concomitant]
  7. LORAZEPAM [Concomitant]
     Dosage: 2 MG, UNK
     Route: 048
  8. LIDODERM [Concomitant]
     Dosage: 5 %, UNK
     Route: 061
  9. POLYETHYLENE GLYCOL [Concomitant]
     Dosage: UNK
     Route: 048
  10. ZOMETA [Suspect]
     Dosage: MONTHLY
     Dates: start: 20050701
  11. AMOXICILLIN [Concomitant]
  12. BACLOFEN [Concomitant]
     Dosage: 20 MG, UNK
     Route: 048
  13. AMBIEN [Concomitant]
     Dosage: 6.25 MG, UNK
     Route: 048
  14. ZANAFLEX [Concomitant]
     Dosage: 2 MG, UNK
     Route: 048
  15. EFFEXOR XR [Concomitant]
     Dosage: 75 MG, UNK
     Route: 048
  16. GABAPENTIN [Concomitant]
     Dosage: 300 UNK, UNK
     Route: 048
  17. AREDIA [Suspect]
  18. NIFEREX (POLYSACCHARIDE-IRON COMPLEX) [Concomitant]
  19. CYTOXAN [Concomitant]
  20. LYRICA [Concomitant]
     Dosage: 100 MG, UNK
     Route: 048
  21. DOXORUBICIN HCL [Concomitant]
  22. MILK OF MAGNESIA [Concomitant]
     Dosage: UNK
     Route: 048
  23. DIAZEPAM [Concomitant]
     Dosage: 5 MG, PRN
     Route: 048
  24. MORPHINE [Concomitant]
     Dosage: 30 MG, UNK
     Route: 048
  25. OXYCODONE [Concomitant]
  26. IBUPROFEN [Concomitant]
     Dosage: 800 MG, UNK
     Route: 048
  27. TEMAZEPAM [Concomitant]
     Dosage: 15 MG, UNK
     Route: 048
  28. PROCHLORPERAZINE [Concomitant]
     Dosage: 10 MG, UNK
     Route: 048
  29. XELODA [Concomitant]
     Dosage: 500 MG, UNK
     Route: 048

REACTIONS (41)
  - DEPRESSION [None]
  - CHRONIC OBSTRUCTIVE PULMONARY DISEASE [None]
  - MUSCLE SPASMS [None]
  - LOSS OF CONSCIOUSNESS [None]
  - PARAPLEGIA [None]
  - FEMUR FRACTURE [None]
  - FALL [None]
  - ARTHRITIS [None]
  - INFECTION [None]
  - SCAR [None]
  - ANXIETY [None]
  - PELVIC FRACTURE [None]
  - TOOTH INFECTION [None]
  - OSTEOPENIA [None]
  - OSTEONECROSIS OF JAW [None]
  - PAIN [None]
  - FAECAL INCONTINENCE [None]
  - INSOMNIA [None]
  - CONSTIPATION [None]
  - EMOTIONAL DISTRESS [None]
  - PATHOLOGICAL FRACTURE [None]
  - ATELECTASIS [None]
  - INTERVERTEBRAL DISC DEGENERATION [None]
  - LETHARGY [None]
  - URINARY INCONTINENCE [None]
  - SPINAL OSTEOARTHRITIS [None]
  - INJURY [None]
  - SPINAL FRACTURE [None]
  - METASTASES TO SPINE [None]
  - KYPHOSIS [None]
  - SYNCOPE [None]
  - LUNG INFILTRATION [None]
  - NEUROGENIC BLADDER [None]
  - PHYSICAL DISABILITY [None]
  - BACK PAIN [None]
  - ASTHENIA [None]
  - BEDRIDDEN [None]
  - METASTASES TO LIVER [None]
  - COMPRESSION FRACTURE [None]
  - OSTEOPOROSIS [None]
  - CONVULSION [None]
